FAERS Safety Report 8230443-X (Version None)
Quarter: 2012Q1

REPORT INFORMATION
  Report Type: 
  Country: None (occurrence: None)
  Receive Date: 20120323
  Receipt Date: 20120316
  Transmission Date: 20120608
  Serious: Yes (Hospitalization, Other)
  Sender: FDA-Public Use
  Company Number: US-BAYER-2011-075365

PATIENT
  Age: 31 Year
  Sex: Female
  Weight: 66 kg

DRUGS (4)
  1. RELAFEN [Concomitant]
  2. LYRICA [Concomitant]
  3. CELEBREX [Concomitant]
  4. DROSPIRENONE AND ETHINYL ESTRADIOL [Suspect]
     Dosage: UNK
     Dates: start: 20100901, end: 20101101

REACTIONS (3)
  - INJURY [None]
  - PULMONARY EMBOLISM [None]
  - PAIN [None]
